APPROVED DRUG PRODUCT: GEMCITABINE HYDROCHLORIDE
Active Ingredient: GEMCITABINE HYDROCHLORIDE
Strength: 1GM/26.3ML (38MG/ML)
Dosage Form/Route: INJECTABLE;INJECTION
Application: A209077 | Product #002 | TE Code: AP
Applicant: SAGENT PHARMACEUTICALS INC
Approved: Jul 20, 2018 | RLD: No | RS: No | Type: RX